FAERS Safety Report 12801479 (Version 2)
Quarter: 2017Q1

REPORT INFORMATION
  Report Type: Spontaneous
  Country: DE (occurrence: DE)
  Receive Date: 20161003
  Receipt Date: 20170201
  Transmission Date: 20170428
  Serious: Yes (Hospitalization, Other)
  Sender: FDA-Public Use
  Company Number: DE-ROCHE-1836221

PATIENT
  Sex: Female
  Weight: 56 kg

DRUGS (4)
  1. BENDAMUSTINE [Suspect]
     Active Substance: BENDAMUSTINE
     Indication: CHRONIC LYMPHOCYTIC LEUKAEMIA
     Dosage: 6 ADMINISTRATIONS
     Route: 042
     Dates: start: 20120627, end: 20130103
  2. MABTHERA [Suspect]
     Active Substance: RITUXIMAB
     Indication: NON-HODGKIN^S LYMPHOMA
     Dosage: 6 ADMINISTRATIONS
     Route: 042
     Dates: start: 20120627, end: 20130103
  3. MABTHERA [Suspect]
     Active Substance: RITUXIMAB
     Dosage: ONE CYCLE MONOTHERAPY
     Route: 042
     Dates: start: 201212, end: 201212
  4. BENDAMUSTINE [Suspect]
     Active Substance: BENDAMUSTINE
     Indication: MANTLE CELL LYMPHOMA

REACTIONS (4)
  - Cerebral toxoplasmosis [Unknown]
  - Epilepsy [Unknown]
  - Progressive multifocal leukoencephalopathy [Unknown]
  - Neoplasm malignant [Recovered/Resolved]

NARRATIVE: CASE EVENT DATE: 201304
